FAERS Safety Report 25919336 (Version 1)
Quarter: 2025Q4

REPORT INFORMATION
  Report Type: Spontaneous
  Country: US (occurrence: US)
  Receive Date: 20251014
  Receipt Date: 20251014
  Transmission Date: 20260118
  Serious: No
  Sender: INNOGENIX, LLC
  Company Number: US-Innogenix, LLC-2186552

PATIENT

DRUGS (2)
  1. PROPRANOLOL HYDROCHLORIDE [Suspect]
     Active Substance: PROPRANOLOL HYDROCHLORIDE
     Indication: Postural orthostatic tachycardia syndrome
  2. PROPRANOLOL HYDROCHLORIDE [Suspect]
     Active Substance: PROPRANOLOL HYDROCHLORIDE
     Indication: Migraine

REACTIONS (21)
  - Weight increased [Unknown]
  - Drug ineffective for unapproved indication [Unknown]
  - Drug ineffective [Unknown]
  - Nausea [Unknown]
  - Alopecia [Unknown]
  - Brain fog [Recovering/Resolving]
  - Pruritus [Unknown]
  - Flushing [Unknown]
  - Tremor [Unknown]
  - Heart rate increased [Unknown]
  - Chest discomfort [Unknown]
  - Chest pain [Unknown]
  - Muscle spasms [Unknown]
  - Decreased appetite [Unknown]
  - Anxiety [Unknown]
  - Headache [Unknown]
  - Condition aggravated [Unknown]
  - Seborrhoeic dermatitis [Unknown]
  - Depersonalisation/derealisation disorder [Unknown]
  - Vision blurred [Unknown]
  - Hypohidrosis [Unknown]
